FAERS Safety Report 5498589-7 (Version None)
Quarter: 2007Q4

REPORT INFORMATION
  Report Type: 
  Country: None (occurrence: None)
  Receive Date: 20071024
  Receipt Date: 20071009
  Transmission Date: 20080405
  Serious: Yes (Hospitalization)
  Sender: FDA-Public Use
  Company Number: SPV1-2007-04464

PATIENT
  Age: 13 Year
  Sex: Female
  Weight: 37.6 kg

DRUGS (6)
  1. ADDERALL XR (AMPHETAMINE ASPARTATE, AMPHETAMINE SULFATE, DEXTROAMPHETA [Suspect]
     Indication: ATTENTION DEFICIT/HYPERACTIVITY DISORDER
     Dosage: 40 MG, 3X/DAY:TID, ORAL; 40 MG, 3X/DAY:TID, ORAL
     Route: 048
     Dates: start: 20050201, end: 20051101
  2. ADDERALL XR (AMPHETAMINE ASPARTATE, AMPHETAMINE SULFATE, DEXTROAMPHETA [Suspect]
     Indication: ATTENTION DEFICIT/HYPERACTIVITY DISORDER
     Dosage: 40 MG, 3X/DAY:TID, ORAL; 40 MG, 3X/DAY:TID, ORAL
     Route: 048
     Dates: start: 20061101, end: 20061201
  3. ADDERALL 10 [Concomitant]
  4. DITROPAN /00538902/ (OXYBUTYNIN HYDROCHLORIDE) TABLET [Concomitant]
  5. CYTRA-K (CITRIC ACID, POTASSIUM CITRATE) [Concomitant]
  6. LABETALOL HCL [Concomitant]

REACTIONS (5)
  - BLADDER DISORDER [None]
  - CALCULUS BLADDER [None]
  - DRUG EFFECT DECREASED [None]
  - MEDICATION RESIDUE [None]
  - OVERDOSE [None]
